FAERS Safety Report 5196641-7 (Version None)
Quarter: 2006Q4

REPORT INFORMATION
  Report Type: 
  Country: None (occurrence: None)
  Receive Date: 20061227
  Receipt Date: 20061211
  Transmission Date: 20070319
  Serious: Yes (Other)
  Sender: FDA-Public Use
  Company Number: 2006025754

PATIENT
  Sex: Female
  Weight: 65.7716 kg

DRUGS (9)
  1. NEURONTIN [Suspect]
     Indication: NEUROPATHY
     Dosage: 1600 MG (DAILY)
  2. LYRICA [Suspect]
     Indication: NEUROPATHY
     Dosage: 150 MG (50 MG, 3 IN 1 D)
     Dates: start: 20061001
  3. RESTORIL [Concomitant]
  4. PROZAC [Concomitant]
  5. ULTRACET [Concomitant]
  6. LASIX [Concomitant]
  7. MULTIVITAMIN [Concomitant]
  8. POTASSIUM (POTASSIUM) [Concomitant]
  9. VITAMIN E [Concomitant]

REACTIONS (6)
  - COLONIC OBSTRUCTION [None]
  - DRUG EFFECT DECREASED [None]
  - HERNIA [None]
  - MYALGIA [None]
  - RASH PRURITIC [None]
  - WEIGHT INCREASED [None]
